FAERS Safety Report 9463785 (Version 1)
Quarter: 2013Q3

REPORT INFORMATION
  Report Type: Report from Study
  Country: JP (occurrence: JP)
  Receive Date: 20130819
  Receipt Date: 20130819
  Transmission Date: 20140515
  Serious: Yes (Hospitalization)
  Sender: FDA-Public Use
  Company Number: JP-BAYER-2013-097027

PATIENT
  Age: 55 Year
  Sex: Male

DRUGS (9)
  1. DACARBAZINE [Suspect]
     Indication: METASTATIC MALIGNANT MELANOMA
     Dosage: 1539 MG, UNK
     Route: 042
     Dates: start: 20130510, end: 20130530
  2. MONOCLONAL ANTIBODIES [Suspect]
     Indication: METASTATIC MALIGNANT MELANOMA
     Dosage: 680 MG, UNK
     Route: 042
     Dates: start: 20130510, end: 20130530
  3. ZOLPIDEM [Concomitant]
     Dosage: UNK
     Dates: start: 20130412
  4. PALONOSETRON [Concomitant]
     Dosage: UNK
     Dates: start: 20130530, end: 20130530
  5. HYDROXYZINE HCL [Concomitant]
     Dosage: UNK
     Dates: start: 20130530, end: 20130530
  6. APREPITANT [Concomitant]
     Dosage: UNK
     Dates: start: 20130530, end: 20130601
  7. DIFLUPREDNATE [Concomitant]
  8. LOXOPROFEN [Concomitant]
     Dosage: UNK
     Dates: start: 20130531, end: 20130602
  9. REBAMIPIDE [Concomitant]
     Dosage: UNK
     Dates: start: 20130531, end: 20130602

REACTIONS (2)
  - Alanine aminotransferase increased [Not Recovered/Not Resolved]
  - Aspartate aminotransferase increased [Not Recovered/Not Resolved]
